FAERS Safety Report 25086741 (Version 5)
Quarter: 2025Q3

REPORT INFORMATION
  Report Type: Spontaneous
  Country: US (occurrence: US)
  Receive Date: 20250318
  Receipt Date: 20250822
  Transmission Date: 20251020
  Serious: Yes (Other)
  Sender: BRISTOL-MYERS SQUIBB COMPANY
  Company Number: US-BRISTOL-MYERS SQUIBB COMPANY-2025-037587

PATIENT
  Age: 69 Year
  Sex: Female

DRUGS (5)
  1. POMALYST [Suspect]
     Active Substance: POMALIDOMIDE
     Indication: Plasma cell myeloma
     Dosage: TAKE 1 CAPSULE (3 MG) BY MOUTH DAILY FOR 21 DAYS FOLLOWED BY 7 DAYS OF REST
     Route: 048
  2. POMALYST [Suspect]
     Active Substance: POMALIDOMIDE
     Dosage: TAKE 1 CAPSULE BY MOUTH EVERY DAY FOR 21 DAYS FOLLOWED BY 7 DAYS OF REST
     Route: 048
     Dates: start: 202503
  3. POMALYST [Suspect]
     Active Substance: POMALIDOMIDE
     Dosage: FREQUENCY: TAKE 1 CAPSULE BY MOUTH EVERY DAY FOR 21 DAYS FOLLOWED BY 7 DAYS OF REST
     Route: 048
  4. POMALYST [Suspect]
     Active Substance: POMALIDOMIDE
     Dosage: FREQUENCY: TAKE 1 CAPSULE BY MOUTH EVERY DAY FOR 21 DAYS FOLLOWED BY 7 DAYS OF REST
     Route: 048
  5. POMALYST [Suspect]
     Active Substance: POMALIDOMIDE
     Route: 048

REACTIONS (15)
  - Fatigue [Recovered/Resolved]
  - Neuropathy peripheral [Recovered/Resolved]
  - Upper respiratory tract infection [Recovered/Resolved]
  - Pain [Not Recovered/Not Resolved]
  - Nausea [Not Recovered/Not Resolved]
  - Decreased appetite [Not Recovered/Not Resolved]
  - Constipation [Not Recovered/Not Resolved]
  - Diarrhoea [Not Recovered/Not Resolved]
  - Plasmacytoma [Recovered/Resolved]
  - Clavicle fracture [Recovered/Resolved]
  - Hypotension [Recovered/Resolved]
  - Bone neoplasm [Not Recovered/Not Resolved]
  - Flushing [Not Recovered/Not Resolved]
  - Feeling hot [Not Recovered/Not Resolved]
  - Pollakiuria [Not Recovered/Not Resolved]

NARRATIVE: CASE EVENT DATE: 20250101
